FAERS Safety Report 20643749 (Version 1)
Quarter: 2022Q1

REPORT INFORMATION
  Report Type: Spontaneous
  Country: US (occurrence: None)
  Receive Date: 20220326
  Receipt Date: 20220326
  Transmission Date: 20220424
  Serious: Yes (Disabling, Other)
  Sender: FDA-Public Use
  Company Number: None

PATIENT
  Age: 60 Year
  Sex: Female
  Weight: 66.6 kg

DRUGS (4)
  1. VERZENIO [Suspect]
     Active Substance: ABEMACICLIB
     Indication: Breast cancer
     Dosage: OTHER QUANTITY : 2 TABLET(S);?FREQUENCY : TWICE A DAY;?
     Route: 048
     Dates: start: 20210427, end: 20210604
  2. RIBOCICLIB [Concomitant]
     Active Substance: RIBOCICLIB
  3. FULVESTRANT [Concomitant]
     Active Substance: FULVESTRANT
  4. XARELTO [Concomitant]
     Active Substance: RIVAROXABAN

REACTIONS (6)
  - General physical health deterioration [None]
  - Hepatitis [None]
  - Product prescribing error [None]
  - Product dispensing issue [None]
  - Incorrect dose administered [None]
  - Therapy interrupted [None]

NARRATIVE: CASE EVENT DATE: 20210427
